FAERS Safety Report 5427330-9 (Version None)
Quarter: 2007Q3

REPORT INFORMATION
  Report Type: 
  Country: None (occurrence: None)
  Receive Date: 20070823
  Receipt Date: 20070814
  Transmission Date: 20080115
  Serious: Yes (Other)
  Sender: FDA-Public Use
  Company Number: B0484098A

PATIENT
  Age: 49 Year
  Sex: Female

DRUGS (3)
  1. LAMOTRIGINE [Suspect]
     Indication: DEPRESSIVE SYMPTOM
     Dosage: SEE IMAGE
  2. CLOMIPRAMINE HCL [Concomitant]
  3. MAPROTILINE [Concomitant]

REACTIONS (6)
  - BLEPHAROSPASM [None]
  - DRUG INEFFECTIVE [None]
  - ECHOPRAXIA [None]
  - OBSESSIVE-COMPULSIVE DISORDER [None]
  - PHOTOPHOBIA [None]
  - TOURETTE'S DISORDER [None]
